FAERS Safety Report 7641773-4 (Version None)
Quarter: 2011Q3

REPORT INFORMATION
  Report Type: 
  Country: None (occurrence: None)
  Receive Date: 20110727
  Receipt Date: 20110727
  Transmission Date: 20111222
  Serious: Yes (Hospitalization, Other)
  Sender: FDA-Public Use
  Company Number: None

PATIENT
  Age: 36 Year
  Sex: Male
  Weight: 83 kg

DRUGS (2)
  1. MINOXIDIL [Suspect]
     Dosage: 10 MG BID ORAL
     Route: 048
     Dates: start: 20110705
  2. MINOXIDIL [Suspect]
     Dosage: 10 MG BID ORAL
     Route: 048
     Dates: start: 20110718

REACTIONS (4)
  - HYPERKALAEMIA [None]
  - ASTHENIA [None]
  - JOINT SWELLING [None]
  - ASCITES [None]
